FAERS Safety Report 13752502 (Version 1)
Quarter: 2017Q3

REPORT INFORMATION
  Report Type: Spontaneous
  Country: CN (occurrence: CN)
  Receive Date: 20170713
  Receipt Date: 20170713
  Transmission Date: 20171127
  Serious: Yes (Other)
  Sender: FDA-Public Use
  Company Number: CN-NAPPMUNDI-GBR-2017-0046764

PATIENT
  Age: 60 Year
  Sex: Male

DRUGS (4)
  1. MORPHINE [Suspect]
     Active Substance: MORPHINE
     Indication: BACK PAIN
  2. OXYCONTIN [Suspect]
     Active Substance: OXYCODONE HYDROCHLORIDE
     Indication: BACK PAIN
     Dosage: 20 MG, Q12H
     Route: 048
     Dates: start: 20170228, end: 20170301
  3. OXYCONTIN [Suspect]
     Active Substance: OXYCODONE HYDROCHLORIDE
     Indication: CHEST PAIN
     Dosage: 40 MG, Q12H
     Route: 048
     Dates: start: 20170228, end: 20170301
  4. MORPHINE [Suspect]
     Active Substance: MORPHINE
     Indication: CHEST PAIN
     Dosage: 2.5 G, UNK
     Route: 065
     Dates: start: 20170228

REACTIONS (3)
  - Coma [Recovering/Resolving]
  - Miosis [Recovering/Resolving]
  - Respiratory depression [Recovering/Resolving]

NARRATIVE: CASE EVENT DATE: 20170301
